FAERS Safety Report 4799960-9 (Version None)
Quarter: 2005Q4

REPORT INFORMATION
  Report Type: 
  Country: None (occurrence: None)
  Receive Date: 20051013
  Receipt Date: 20051006
  Transmission Date: 20060501
  Serious: Yes (Other)
  Sender: FDA-Public Use
  Company Number: 200513399GDS

PATIENT
  Age: 50 Year
  Sex: Male

DRUGS (2)
  1. GLUCOBAY [Suspect]
  2. AMLODIPINE [Suspect]
     Indication: HYPERTENSION
     Dosage: ORAL
     Route: 048

REACTIONS (2)
  - HEART RATE IRREGULAR [None]
  - HYPERTENSION [None]
